FAERS Safety Report 14901985 (Version 2)
Quarter: 2018Q4

REPORT INFORMATION
  Report Type: Spontaneous
  Country: GB (occurrence: GB)
  Receive Date: 20180516
  Receipt Date: 20181029
  Transmission Date: 20190204
  Serious: Yes (Other)
  Sender: FDA-Public Use
  Company Number: GB-TAKEDA-2018TUS016882

PATIENT
  Age: 62 Year
  Sex: Male
  Weight: 101.2 kg

DRUGS (2)
  1. ENTYVIO [Suspect]
     Active Substance: VEDOLIZUMAB
     Dosage: 300 MG, UNK
     Route: 042
     Dates: start: 201709
  2. ENTYVIO [Suspect]
     Active Substance: VEDOLIZUMAB
     Indication: CROHN^S DISEASE
     Dosage: 300 MG, UNK
     Route: 042
     Dates: start: 201508, end: 201610

REACTIONS (11)
  - Poor peripheral circulation [Unknown]
  - Brain hypoxia [Unknown]
  - Arthralgia [Unknown]
  - Hypoaesthesia [Unknown]
  - Myalgia [Unknown]
  - Bone density decreased [Unknown]
  - Bone pain [Unknown]
  - Dizziness [Unknown]
  - Tremor [Unknown]
  - Phobia [Unknown]
  - Palpitations [Unknown]

NARRATIVE: CASE EVENT DATE: 201709
